FAERS Safety Report 10803248 (Version 1)
Quarter: 2015Q1

REPORT INFORMATION
  Report Type: Report from Study
  Country: US (occurrence: US)
  Receive Date: 20150217
  Receipt Date: 20150217
  Transmission Date: 20150721
  Serious: Yes (Other)
  Sender: FDA-Public Use
  Company Number: US-SANOFI-AVENTIS-2013SA059922

PATIENT
  Age: 35 Year
  Sex: Female

DRUGS (1)
  1. AUBAGIO [Suspect]
     Active Substance: TERIFLUNOMIDE
     Indication: MULTIPLE SCLEROSIS
     Dosage: ABOUT 2 WKS AGO
     Route: 048
     Dates: start: 20130602, end: 20150101

REACTIONS (11)
  - Urinary tract infection [Recovered/Resolved]
  - Hypoaesthesia [Unknown]
  - Vision blurred [Recovered/Resolved]
  - Unevaluable event [Unknown]
  - Memory impairment [Unknown]
  - Migraine [Unknown]
  - Diarrhoea [Unknown]
  - Drug dose omission [Unknown]
  - Visual impairment [Unknown]
  - Fatigue [Recovered/Resolved]
  - Blindness [Unknown]
